FAERS Safety Report 6626037-X (Version None)
Quarter: 2010Q1

REPORT INFORMATION
  Report Type: 
  Country: None (occurrence: None)
  Receive Date: 20100310
  Receipt Date: 20100303
  Transmission Date: 20100710
  Serious: Yes (Congenital Anomaly)
  Sender: FDA-Public Use
  Company Number: A0680231A

PATIENT
  Sex: Female

DRUGS (8)
  1. PAXIL [Suspect]
     Dates: end: 20021001
  2. PAXIL CR [Suspect]
     Indication: SLEEP DISORDER
     Dates: end: 20021001
  3. HUMALOG [Concomitant]
  4. HUMULIN R [Concomitant]
  5. ALDOMET [Concomitant]
  6. GLUCOPHAGE [Concomitant]
     Dates: start: 20020530
  7. TRAZODONE HCL [Concomitant]
     Dates: start: 20000101, end: 20020101
  8. PROZAC [Concomitant]
     Dates: start: 20000101, end: 20020101

REACTIONS (4)
  - CRANIOSYNOSTOSIS [None]
  - DRUG EXPOSURE DURING PREGNANCY [None]
  - DYSMORPHISM [None]
  - SKULL MALFORMATION [None]
